FAERS Safety Report 6172653-1 (Version None)
Quarter: 2009Q2

REPORT INFORMATION
  Report Type: 
  Country: None (occurrence: None)
  Receive Date: 20090430
  Receipt Date: 20090423
  Transmission Date: 20091009
  Serious: Yes (Hospitalization)
  Sender: FDA-Public Use
  Company Number: US-BAYER-200918462NA

PATIENT
  Sex: Female

DRUGS (1)
  1. BETASERON [Suspect]
     Indication: RELAPSING-REMITTING MULTIPLE SCLEROSIS
     Dosage: LESS THAN 1 YEAR, AT LEAST 10 YEARS AGO

REACTIONS (4)
  - ADVERSE DRUG REACTION [None]
  - HEPATIC ENZYME ABNORMAL [None]
  - NAUSEA [None]
  - VOMITING [None]
